FAERS Safety Report 9757555 (Version 2)
Quarter: 2013Q4

REPORT INFORMATION
  Report Type: Spontaneous
  Country: US (occurrence: US)
  Receive Date: 20131216
  Receipt Date: 20131216
  Transmission Date: 20140711
  Serious: Yes (Hospitalization)
  Sender: FDA-Public Use
  Company Number: US-BEH-2013037672

PATIENT
  Age: 49 Year
  Sex: Female
  Weight: 42 kg

DRUGS (33)
  1. HIZENTRA [Suspect]
     Indication: IMMUNODEFICIENCY COMMON VARIABLE
     Dosage: VIA 2-3 SITES OVER 1-2 HOURS
     Route: 058
  2. HIZENTRA [Suspect]
     Dosage: 1 GM 5 ML;2-3 SITES OVER 1-2 HOURS; TOTAL WEEKLY DOSE OF HIZENTRA 7 G
     Route: 058
  3. HIZENTRA [Suspect]
     Dosage: 2 GM 10 ML;2-3SITES OVER 1-2 HOURS; TOTAL WEEKLY DOSE OF HIZENTRA 7 G
     Route: 058
  4. METHYLPREDNISOLONE [Concomitant]
  5. DILANTIN [Concomitant]
  6. LAMICTAL [Concomitant]
  7. TRIAMCINOLONE [Concomitant]
  8. MIRTAZAPINE [Concomitant]
  9. LEVOFLOXACIN [Concomitant]
  10. BUTALBITAL-ASA-CAFFEINE [Concomitant]
  11. DICLOFENAC SOD EC [Concomitant]
  12. CYCLOBENZAPRINE [Concomitant]
  13. HYDROCODONE-ACETAMINOPHEN [Concomitant]
  14. DIPHENHYDRAMINE [Concomitant]
  15. LIDOCAINE/PRILOCAINE [Concomitant]
  16. EPI-PEN [Concomitant]
  17. SINGULAIR [Concomitant]
  18. NASACORT [Concomitant]
  19. AZITHROMYCIN [Concomitant]
  20. HYDROXYCHLOROQUINE [Concomitant]
  21. OMEPRAZOLE [Concomitant]
  22. SERTRALINE HCL [Concomitant]
  23. ACETAMINOPHEN [Concomitant]
  24. ALBUTEROL [Concomitant]
  25. ZYRTEC [Concomitant]
  26. DULCOLAX (BISACODYL) [Concomitant]
  27. SPIRIVA [Concomitant]
  28. PHENOBARBITAL [Concomitant]
  29. THEOPHYLLINE [Concomitant]
  30. CLARITIN [Concomitant]
  31. XOPENEX [Concomitant]
  32. MIRALAX [Concomitant]
  33. TRIAMCINOLONE/AQUAPHOR [Concomitant]
     Indication: PRURITUS

REACTIONS (4)
  - Chronic obstructive pulmonary disease [Unknown]
  - Condition aggravated [Unknown]
  - Rash [Unknown]
  - Injection site erythema [Unknown]
